FAERS Safety Report 19771255 (Version 3)
Quarter: 2021Q3

REPORT INFORMATION
  Report Type: Spontaneous
  Country: US (occurrence: US)
  Receive Date: 20210831
  Receipt Date: 20210903
  Transmission Date: 20211014
  Serious: No
  Sender: FDA-Public Use
  Company Number: US-SA-2021SA285738

PATIENT
  Sex: Female

DRUGS (9)
  1. COSENTYX [Concomitant]
     Active Substance: SECUKINUMAB
  2. PIOGLITAZONE HYDROCHLORIDE. [Concomitant]
     Active Substance: PIOGLITAZONE HYDROCHLORIDE
  3. TRIAMCINOLONE ACETONIDE. [Concomitant]
     Active Substance: TRIAMCINOLONE ACETONIDE
  4. METHOTREXATE. [Concomitant]
     Active Substance: METHOTREXATE
  5. GABAPENTIN. [Concomitant]
     Active Substance: GABAPENTIN
  6. PIOGLITAZONE. [Concomitant]
     Active Substance: PIOGLITAZONE
  7. DUPIXENT [Suspect]
     Active Substance: DUPILUMAB
     Indication: DERMATITIS ATOPIC
     Dosage: 300 MG
     Route: 058
  8. TRINTELLIX [Concomitant]
     Active Substance: VORTIOXETINE HYDROBROMIDE
  9. GABAPENTIN. [Concomitant]
     Active Substance: GABAPENTIN

REACTIONS (1)
  - Drug effect less than expected [Unknown]
